FAERS Safety Report 7092745-2 (Version None)
Quarter: 2010Q4

REPORT INFORMATION
  Report Type: 
  Country: None (occurrence: None)
  Receive Date: 20101110
  Receipt Date: 20080721
  Transmission Date: 20110411
  Serious: No
  Sender: FDA-Public Use
  Company Number: US-KINGPHARMUSA00001-K200800855

PATIENT
  Age: 64 Year
  Sex: Female

DRUGS (5)
  1. LEVOXYL [Suspect]
     Dosage: 88 MCG, QD
     Route: 048
  2. UNSPECIFIED HIGH BLOOD PRESSURE MEDICATION [Concomitant]
     Indication: HYPERTENSION
  3. OXYCONTIN [Concomitant]
     Dates: end: 20080705
  4. PERCOCET [Concomitant]
     Dates: end: 20080705
  5. ZETIA [Concomitant]
     Dates: end: 20080705

REACTIONS (10)
  - ABDOMINAL DISCOMFORT [None]
  - ANXIETY [None]
  - BLOOD PRESSURE INCREASED [None]
  - DRY THROAT [None]
  - FATIGUE [None]
  - GASTRITIS [None]
  - INSOMNIA [None]
  - MUSCLE TWITCHING [None]
  - PHARYNGEAL OEDEMA [None]
  - WEIGHT DECREASED [None]
